FAERS Safety Report 6552715-7 (Version None)
Quarter: 2010Q1

REPORT INFORMATION
  Report Type: 
  Country: None (occurrence: None)
  Receive Date: 20100121
  Receipt Date: 20100111
  Transmission Date: 20100710
  Serious: Yes (Death)
  Sender: FDA-Public Use
  Company Number: 004577

PATIENT
  Age: 34 Year
  Sex: Male

DRUGS (6)
  1. ALPRAZOLAM [Suspect]
  2. FENTANYL [Suspect]
  3. CITALOPRAM HYDROBROMIDE [Suspect]
  4. PHENOBARBITAL TAB [Concomitant]
  5. ZOLPIDEM [Concomitant]
  6. LORAZEPAM [Concomitant]

REACTIONS (5)
  - BRAIN OEDEMA [None]
  - COMPLETED SUICIDE [None]
  - DRUG TOXICITY [None]
  - POISONING [None]
  - PULMONARY OEDEMA [None]
